FAERS Safety Report 9052638 (Version 2)
Quarter: 2013Q1

REPORT INFORMATION
  Report Type: Spontaneous
  Country: KR (occurrence: KR)
  Receive Date: 20130207
  Receipt Date: 20130306
  Transmission Date: 20140127
  Serious: Yes (Other)
  Sender: FDA-Public Use
  Company Number: 2013SP002130

PATIENT
  Age: 37 Year
  Sex: Female

DRUGS (15)
  1. VORICONAZOLE [Suspect]
     Indication: ANTIFUNGAL PROPHYLAXIS
     Route: 048
  2. FLUCONAZOLE [Concomitant]
     Indication: ANTIFUNGAL PROPHYLAXIS
  3. CEFEPIME [Concomitant]
     Indication: FEBRILE NEUTROPENIA
  4. MEROPENEM [Concomitant]
     Indication: FEBRILE NEUTROPENIA
  5. ITRACONAZOLE [Concomitant]
     Indication: ANTIFUNGAL PROPHYLAXIS
     Route: 042
  6. ITRACONAZOLE [Concomitant]
     Indication: ANTIFUNGAL PROPHYLAXIS
     Route: 042
  7. ITRACONAZOLE [Concomitant]
     Indication: ANTIFUNGAL PROPHYLAXIS
     Route: 048
  8. ITRACONAZOLE [Concomitant]
     Indication: ANTIFUNGAL PROPHYLAXIS
     Route: 048
  9. ISEPAMICIN [Concomitant]
     Indication: FEBRILE NEUTROPENIA
  10. CILASTATIN [Concomitant]
     Indication: FEBRILE NEUTROPENIA
  11. IMIPENEM [Concomitant]
     Indication: FEBRILE NEUTROPENIA
  12. TEICOPLANIN [Concomitant]
     Indication: FEBRILE NEUTROPENIA
  13. AMPHOTERICIN B [Concomitant]
     Indication: ANTIFUNGAL PROPHYLAXIS
     Route: 042
  14. AMPHOTERICIN B [Concomitant]
     Indication: ANTIFUNGAL PROPHYLAXIS
     Route: 042
  15. AMPHOTERICIN B [Concomitant]
     Indication: ANTIFUNGAL PROPHYLAXIS
     Route: 042

REACTIONS (10)
  - Febrile neutropenia [Unknown]
  - Systemic candida [Unknown]
  - Blood alkaline phosphatase increased [Unknown]
  - Pleuritic pain [Unknown]
  - Pneumonia necrotising [Unknown]
  - Zygomycosis [Recovered/Resolved]
  - Rash [Unknown]
  - Asthenia [Unknown]
  - Nausea [Unknown]
  - Pyrexia [Unknown]
